FAERS Safety Report 5272597-3 (Version None)
Quarter: 2007Q1

REPORT INFORMATION
  Report Type: 
  Country: None (occurrence: None)
  Receive Date: 20070320
  Receipt Date: 20070320
  Transmission Date: 20070707
  Serious: Yes (Other)
  Sender: FDA-Public Use
  Company Number: None

PATIENT
  Age: 50 Year
  Sex: Female
  Weight: 86.1834 kg

DRUGS (1)
  1. ZEGERID [Suspect]
     Indication: GASTROOESOPHAGEAL REFLUX DISEASE
     Dosage: 40 MG 1 CAPSULE A DAY PO
     Route: 048
     Dates: start: 20061101, end: 20070307

REACTIONS (6)
  - ARTHRALGIA [None]
  - BURNING SENSATION [None]
  - CHOLELITHIASIS [None]
  - CONDITION AGGRAVATED [None]
  - DYSPEPSIA [None]
  - PAIN IN EXTREMITY [None]
